FAERS Safety Report 19200657 (Version 1)
Quarter: 2021Q2

REPORT INFORMATION
  Report Type: Report from Study
  Country: US (occurrence: US)
  Receive Date: 20210430
  Receipt Date: 20210430
  Transmission Date: 20210717
  Serious: Yes (Life-Threatening)
  Sender: FDA-Public Use
  Company Number: US-MYLANLABS-2021M1025725

PATIENT

DRUGS (10)
  1. CISPLATIN. [Suspect]
     Active Substance: CISPLATIN
     Indication: MEDULLOBLASTOMA
     Dosage: 3.5 MILLIGRAM/KILOGRAM, CYCLE ON DAY 1; CYCLE 1; AS PER INDUCTION REGIMEN D
     Route: 065
  2. METHOTREXATE. [Suspect]
     Active Substance: METHOTREXATE
     Indication: MEDULLOBLASTOMA
     Dosage: 400 MILLIGRAM/KILOGRAM, CYCLE ON DAY 3; CYCLE 1, 3 AND 5; AS PER INDUCTION REGIMEN D
     Route: 065
  3. VINCRISTINE [Suspect]
     Active Substance: VINCRISTINE
     Indication: MEDULLOBLASTOMA
     Dosage: 0.05 MILLIGRAM/KILOGRAM, CYCLE ON DAYS 1, 8 AND 15; CYCLE 1, 3 AND 5; AS PER INDUCTION REGIMEN D
     Route: 065
  4. THIOTEPA. [Suspect]
     Active Substance: THIOTEPA
     Indication: MEDULLOBLASTOMA
     Dosage: 300 MILLIGRAM/SQ. METER, QD
     Route: 065
  5. TEMOZOLOMIDE. [Suspect]
     Active Substance: TEMOZOLOMIDE
     Indication: MEDULLOBLASTOMA
     Dosage: 6.5 MILLIGRAM/KILOGRAM, CYCLE ON DAYS 1?5; CYCLE 2 AND 4; AS PER INDUCTION REGIMEN D
     Route: 048
  6. ETOPOSIDE. [Suspect]
     Active Substance: ETOPOSIDE
     Indication: MEDULLOBLASTOMA
     Dosage: 4 MILLIGRAM/KILOGRAM, CYCLE ON DAYS 2 AND 3; CYCLE 1, 3 AND 5; AS PER INDUCTION REGIMEN D
     Route: 042
  7. CYCLOPHOSPHAMIDE. [Suspect]
     Active Substance: CYCLOPHOSPHAMIDE
     Indication: MEDULLOBLASTOMA
     Dosage: 65 MILLIGRAM/KILOGRAM, CYCLE ON DAYS 2 AND 3; CYCLE 1, 2, 3, 4 AND 5; AS PER INDUCTION REGIMEN D
     Route: 065
  8. ETOPOSIDE. [Suspect]
     Active Substance: ETOPOSIDE
     Indication: MEDULLOBLASTOMA
     Dosage: 250 MILLIGRAM/SQ. METER, QD
     Route: 065
  9. CARBOPLATIN. [Suspect]
     Active Substance: CARBOPLATIN
     Indication: MEDULLOBLASTOMA
     Dosage: AUC OF 7
     Route: 065
  10. ETOPOSIDE. [Suspect]
     Active Substance: ETOPOSIDE
     Indication: MEDULLOBLASTOMA
     Dosage: 1.65 MILLIGRAM/KILOGRAM, CYCLE ON DAYS 1?10; CYCLE 2 AND 4; AS PER INDUCTION REGIMEN D
     Route: 048

REACTIONS (1)
  - Encephalopathy [Recovered/Resolved]
